FAERS Safety Report 9290128 (Version 3)
Quarter: 2014Q1

REPORT INFORMATION
  Report Type: Spontaneous
  Country: US (occurrence: US)
  Receive Date: 20130515
  Receipt Date: 20140106
  Transmission Date: 20141002
  Serious: Yes (Other)
  Sender: FDA-Public Use
  Company Number: US-JNJFOC-20130501001

PATIENT
  Sex: Female

DRUGS (8)
  1. HALDOL [Suspect]
     Indication: PSYCHOTIC DISORDER
     Route: 065
  2. RISPERDAL [Suspect]
     Indication: PSYCHOTIC DISORDER
     Route: 048
  3. TOPAMAX [Interacting]
     Indication: PRODUCT USED FOR UNKNOWN INDICATION
     Route: 048
  4. ZOLOFT [Interacting]
     Indication: SEROTONIN SYNDROME
     Route: 065
  5. ZOLOFT [Interacting]
     Indication: SEROTONIN SYNDROME
     Route: 065
  6. GEODON [Suspect]
     Indication: PRODUCT USED FOR UNKNOWN INDICATION
     Route: 065
  7. ZYPREXA [Suspect]
     Indication: PRODUCT USED FOR UNKNOWN INDICATION
     Route: 065
  8. ATIVAN [Suspect]
     Indication: PRODUCT USED FOR UNKNOWN INDICATION
     Route: 065

REACTIONS (11)
  - Toxicity to various agents [Unknown]
  - Dyspnoea [Recovered/Resolved with Sequelae]
  - Chest pain [Unknown]
  - Drug interaction [Unknown]
  - Lung disorder [Unknown]
  - Blood carbon monoxide [Unknown]
  - Oral disorder [Unknown]
  - Eating disorder [Unknown]
  - Dehydration [Unknown]
  - Muscle spasms [Unknown]
  - Abnormal behaviour [Unknown]
